FAERS Safety Report 7465252-2 (Version None)
Quarter: 2011Q2

REPORT INFORMATION
  Report Type: 
  Country: None (occurrence: None)
  Receive Date: 20110509
  Receipt Date: 20110426
  Transmission Date: 20111010
  Serious: Yes (Other)
  Sender: FDA-Public Use
  Company Number: PHHY2011DE13356

PATIENT
  Sex: Female
  Weight: 57 kg

DRUGS (4)
  1. ZOMETA [Suspect]
     Indication: BONE DISORDER
     Dosage: 4 MG, UNK
     Route: 042
     Dates: start: 20091015, end: 20100921
  2. ZOMETA [Suspect]
     Dosage: 4 MG, EVERY 4 WEEKS
     Route: 042
     Dates: start: 20091015, end: 20100921
  3. IBUPROFEN [Concomitant]
     Dosage: 1200 MG, UNK
     Dates: start: 20091015
  4. SUTENT [Concomitant]
     Dosage: 50 MG, QD
     Dates: start: 20091012, end: 20101030

REACTIONS (3)
  - METASTASES TO BONE [None]
  - OSTEONECROSIS OF JAW [None]
  - PAIN IN JAW [None]
